FAERS Safety Report 8144244-4 (Version None)
Quarter: 2012Q1

REPORT INFORMATION
  Report Type: 
  Country: None (occurrence: None)
  Receive Date: 20120217
  Receipt Date: 20120206
  Transmission Date: 20120608
  Serious: Yes (Life-Threatening)
  Sender: FDA-Public Use
  Company Number: AU-NOVOPROD-236163

PATIENT
  Age: 40 Year
  Sex: Female
  Weight: 59 kg

DRUGS (5)
  1. DOPAMINE HCL [Concomitant]
     Route: 042
     Dates: start: 20040218, end: 20040218
  2. OXYTOCIN [Concomitant]
     Dates: start: 20040218, end: 20040218
  3. ADRENALIN IN OIL INJ [Concomitant]
     Route: 042
     Dates: start: 20040218, end: 20040218
  4. PROSTAGLANDINS [Concomitant]
     Route: 015
     Dates: start: 20040218, end: 20040218
  5. NOVOSEVEN RT [Suspect]
     Indication: HAEMORRHAGE
     Dosage: IN TOTAL 6 MG
     Dates: start: 20040218, end: 20040218

REACTIONS (1)
  - HAEMORRHAGE [None]
